FAERS Safety Report 9906833 (Version 1)
Quarter: 2014Q1

REPORT INFORMATION
  Report Type: Spontaneous
  Country: CL (occurrence: CL)
  Receive Date: 20140218
  Receipt Date: 20140218
  Transmission Date: 20141002
  Serious: Yes (Other)
  Sender: FDA-Public Use
  Company Number: CL-PFIZER INC-2014044182

PATIENT
  Age: 85 Year
  Sex: Female

DRUGS (3)
  1. XALATAN [Suspect]
     Indication: GLAUCOMA
     Dosage: 1 DF, 1X/DAY AT 8:00 P.M.
     Route: 047
     Dates: start: 2007
  2. TAREG D [Concomitant]
  3. EUTIROX [Concomitant]

REACTIONS (1)
  - Hypoacusis [Not Recovered/Not Resolved]
